FAERS Safety Report 9993679 (Version 2)
Quarter: 2014Q1

REPORT INFORMATION
  Report Type: Report from Study
  Country: NL (occurrence: NL)
  Receive Date: 20140310
  Receipt Date: 20140326
  Transmission Date: 20141002
  Serious: Yes (Other)
  Sender: FDA-Public Use
  Company Number: PHHY2014NL028544

PATIENT
  Age: 61 Year
  Sex: Female

DRUGS (3)
  1. ZOMETA [Suspect]
     Indication: RENAL CELL CARCINOMA
     Dosage: 4 MG/100 ML, ONCE EVERY 4 WEEKS
     Route: 042
  2. ZOMETA [Suspect]
     Dosage: 4 MG/100 ML, ONCE EVERY 4 WEEKS
     Route: 042
     Dates: start: 20120125
  3. ZOMETA [Suspect]
     Dosage: 4 MG/100 ML, ONCE EVERY 4 WEEKS
     Route: 042
     Dates: start: 20140130

REACTIONS (4)
  - General physical health deterioration [Not Recovered/Not Resolved]
  - Intestinal obstruction [Unknown]
  - Renal cell carcinoma [Unknown]
  - Malignant neoplasm progression [Unknown]
